FAERS Safety Report 4681367-6 (Version None)
Quarter: 2005Q2

REPORT INFORMATION
  Report Type: 
  Country: None (occurrence: None)
  Receive Date: 20050601
  Receipt Date: 20050518
  Transmission Date: 20051028
  Serious: Yes (Other)
  Sender: FDA-Public Use
  Company Number: 142165USA

PATIENT

DRUGS (1)
  1. PROPOFOL [Suspect]

REACTIONS (2)
  - PANCREATITIS [None]
  - POST PROCEDURAL COMPLICATION [None]
